FAERS Safety Report 7211584-2 (Version None)
Quarter: 2011Q1

REPORT INFORMATION
  Report Type: 
  Country: None (occurrence: None)
  Receive Date: 20110105
  Receipt Date: 20101230
  Transmission Date: 20110831
  Serious: No
  Sender: FDA-Public Use
  Company Number: US-PFIZER INC-2010159936

PATIENT
  Sex: Female
  Weight: 54 kg

DRUGS (5)
  1. VITAMIN D [Concomitant]
     Dosage: UNK
  2. ESTRADIOL [Concomitant]
     Dosage: UNK
  3. CHANTIX [Suspect]
     Indication: SMOKING CESSATION THERAPY
     Dosage: 0.5 MG, 1X/DAY
     Route: 048
     Dates: start: 20101125, end: 20101128
  4. CHANTIX [Suspect]
     Dosage: UNK
     Route: 048
     Dates: start: 20101129, end: 20101129
  5. MULTI-VITAMINS [Concomitant]
     Dosage: UNK

REACTIONS (4)
  - HYPERSENSITIVITY [None]
  - ERYTHEMA [None]
  - FEELING HOT [None]
  - SUNBURN [None]
